FAERS Safety Report 21477095 (Version 1)
Quarter: 2022Q4

REPORT INFORMATION
  Report Type: Spontaneous
  Country: US (occurrence: US)
  Receive Date: 20221019
  Receipt Date: 20221019
  Transmission Date: 20230112
  Serious: Yes (Other)
  Sender: FDA-Public Use
  Company Number: US-REGENERON PHARMACEUTICALS, INC.-2022-129915

PATIENT
  Age: 80 Year
  Sex: Female

DRUGS (1)
  1. EYLEA [Suspect]
     Active Substance: AFLIBERCEPT
     Indication: Macular degeneration
     Dosage: UNK, 5-6 WEEKS, BOTH EYES
     Dates: start: 2020

REACTIONS (9)
  - Atrial fibrillation [Unknown]
  - Headache [Recovered/Resolved]
  - Facial pain [Recovered/Resolved]
  - Eye oedema [Recovered/Resolved]
  - Visual impairment [Recovered/Resolved]
  - Coronary artery disease [Unknown]
  - Visual acuity reduced [Unknown]
  - Visual impairment [Unknown]
  - Eye pain [Recovered/Resolved]

NARRATIVE: CASE EVENT DATE: 20200101
